FAERS Safety Report 5837316-8 (Version None)
Quarter: 2008Q3

REPORT INFORMATION
  Report Type: 
  Country: None (occurrence: None)
  Receive Date: 20080807
  Receipt Date: 20080730
  Transmission Date: 20090109
  Serious: Yes (Other)
  Sender: FDA-Public Use
  Company Number: US-PFIZER INC-2008064053

PATIENT
  Sex: Female
  Weight: 120 kg

DRUGS (1)
  1. LYRICA [Suspect]
     Indication: FIBROMYALGIA
     Dates: start: 20080729, end: 20080729

REACTIONS (3)
  - DYSPNOEA [None]
  - EMOTIONAL DISTRESS [None]
  - PARALYSIS [None]
